FAERS Safety Report 18484348 (Version 2)
Quarter: 2020Q4

REPORT INFORMATION
  Report Type: Report from Study
  Country: US (occurrence: US)
  Receive Date: 20201110
  Receipt Date: 20201130
  Transmission Date: 20210114
  Serious: Yes (Death, Hospitalization, Other)
  Sender: FDA-Public Use
  Company Number: US-ASTELLAS-2020US029304

PATIENT
  Sex: Male

DRUGS (2)
  1. ASP2215 [Suspect]
     Active Substance: GILTERITINIB
     Indication: ACUTE MYELOID LEUKAEMIA
     Route: 048
     Dates: start: 20200731
  2. ASP2215 [Suspect]
     Active Substance: GILTERITINIB
     Dosage: 120 MG, UNKNOWN FREQUENCY (ONE TABLET IN THE MORNING AND TWO IN THE EVENING)
     Route: 048
     Dates: end: 20201125

REACTIONS (6)
  - Platelet count decreased [Unknown]
  - Acute myeloid leukaemia [Unknown]
  - Decreased appetite [Unknown]
  - Death [Fatal]
  - Inappropriate schedule of product administration [Unknown]
  - Tremor [Unknown]
